FAERS Safety Report 7514539-3 (Version None)
Quarter: 2011Q2

REPORT INFORMATION
  Report Type: 
  Country: None (occurrence: None)
  Receive Date: 20110601
  Receipt Date: 20101210
  Transmission Date: 20111010
  Serious: No
  Sender: FDA-Public Use
  Company Number: US-BAYER-2010-004042

PATIENT
  Age: 75 Year
  Sex: Male

DRUGS (2)
  1. NEXAVAR [Suspect]
     Indication: MYELODYSPLASTIC SYNDROME UNCLASSIFIABLE
     Dosage: 400 MG, BID
     Route: 048
     Dates: start: 20101029, end: 20100101
  2. GLEEVEC [Concomitant]

REACTIONS (1)
  - ADVERSE DRUG REACTION [None]
